FAERS Safety Report 18631673 (Version 1)
Quarter: 2020Q4

REPORT INFORMATION
  Report Type: Spontaneous
  Country: US (occurrence: US)
  Receive Date: 20201217
  Receipt Date: 20201217
  Transmission Date: 20210114
  Serious: No
  Sender: FDA-Public Use
  Company Number: US-ENDO PHARMACEUTICALS INC-2020-005300

PATIENT
  Sex: Male

DRUGS (6)
  1. XIAFLEX [Suspect]
     Active Substance: COLLAGENASE CLOSTRIDIUM HISTOLYTICUM
     Indication: PEYRONIE^S DISEASE
     Dosage: UNKNOWN, UNKNOWN; CYCLE ONE, INJECTION ONE
     Route: 026
     Dates: start: 20200721
  2. XIAFLEX [Suspect]
     Active Substance: COLLAGENASE CLOSTRIDIUM HISTOLYTICUM
     Dosage: UNKNOWN, UNKNOWN; CYCLE TWO, INJECTION TWO
     Route: 026
     Dates: start: 20200903
  3. XIAFLEX [Suspect]
     Active Substance: COLLAGENASE CLOSTRIDIUM HISTOLYTICUM
     Dosage: UNKNOWN, UNKNOWN; CYCLE THREE, INJECTION ONE
     Route: 026
     Dates: start: 2020
  4. XIAFLEX [Suspect]
     Active Substance: COLLAGENASE CLOSTRIDIUM HISTOLYTICUM
     Dosage: UNKNOWN, UNKNOWN; CYCLE TWO, INJECTION ONE
     Route: 026
     Dates: start: 20200826
  5. XIAFLEX [Suspect]
     Active Substance: COLLAGENASE CLOSTRIDIUM HISTOLYTICUM
     Dosage: UNKNOWN, UNKNOWN; CYCLE THREE, INJECTION TWO
     Route: 026
     Dates: start: 2020
  6. XIAFLEX [Suspect]
     Active Substance: COLLAGENASE CLOSTRIDIUM HISTOLYTICUM
     Dosage: UNKNOWN, UNKNOWN; CYCLE ONE, INJECTION TWO
     Route: 026
     Dates: start: 20200723

REACTIONS (9)
  - Swelling [Unknown]
  - Injection site pain [Unknown]
  - Peyronie^s disease [Unknown]
  - Penile contusion [Unknown]
  - Penile swelling [Unknown]
  - Genital contusion [Unknown]
  - Drug ineffective [Unknown]
  - Injection site nodule [Unknown]
  - Pruritus genital [Unknown]

NARRATIVE: CASE EVENT DATE: 2020
